FAERS Safety Report 7024039-5 (Version None)
Quarter: 2010Q4

REPORT INFORMATION
  Report Type: 
  Country: None (occurrence: None)
  Receive Date: 20101001
  Receipt Date: 20100910
  Transmission Date: 20110411
  Serious: Yes (Hospitalization, Other)
  Sender: FDA-Public Use
  Company Number: US-BAYER-201026148NA

PATIENT
  Age: 33 Year
  Sex: Female
  Weight: 68 kg

DRUGS (1)
  1. YAZ [Suspect]
     Indication: CONTRACEPTION
     Route: 048
     Dates: start: 20070601, end: 20080617

REACTIONS (2)
  - DEEP VEIN THROMBOSIS [None]
  - PAIN IN EXTREMITY [None]
